FAERS Safety Report 6029030-3 (Version None)
Quarter: 2009Q1

REPORT INFORMATION
  Report Type: 
  Country: None (occurrence: None)
  Receive Date: 20090106
  Receipt Date: 20081225
  Transmission Date: 20090719
  Serious: Yes (Other)
  Sender: FDA-Public Use
  Company Number: JP-ELI_LILLY_AND_COMPANY-JP200802002299

PATIENT
  Sex: Female
  Weight: 36 kg

DRUGS (12)
  1. EVISTA [Suspect]
     Indication: OSTEOPOROSIS
     Dosage: 60 MG, DAILY (1/D)
     Route: 048
     Dates: start: 20071223, end: 20080207
  2. FLUOROURACIL [Concomitant]
     Indication: LIP AND/OR ORAL CAVITY CANCER
     Dosage: 250 MG, DAILY (1/D)
     Route: 013
     Dates: start: 20060724, end: 20060728
  3. TAXOTERE [Concomitant]
     Indication: LIP AND/OR ORAL CAVITY CANCER
     Dosage: 20 MG, WEEKLY (1/W)
     Route: 013
     Dates: start: 20060731, end: 20060818
  4. TAXOTERE [Concomitant]
     Dosage: 20 MG, WEEKLY (1/W)
     Route: 013
     Dates: start: 20061010, end: 20061018
  5. CISPLATIN [Concomitant]
     Indication: LIP AND/OR ORAL CAVITY CANCER
     Dosage: 6.5 MG, 5/W
     Route: 013
     Dates: start: 20060731, end: 20060818
  6. CISPLATIN [Concomitant]
     Dosage: 6.5 MG, 5/W
     Route: 013
     Dates: start: 20061010, end: 20061018
  7. UFT [Concomitant]
     Indication: LIP AND/OR ORAL CAVITY CANCER
     Dosage: 1.5 G, DAILY (1/D)
     Route: 048
     Dates: start: 20061108, end: 20070816
  8. UFT [Concomitant]
     Dosage: 1.5 G, DAILY (1/D)
     Route: 048
     Dates: start: 20071019
  9. TS 1 [Concomitant]
     Indication: LIP AND/OR ORAL CAVITY CANCER
     Dosage: 80 MG, DAILY (1/D)
     Route: 048
     Dates: start: 20070817, end: 20070830
  10. TS 1 [Concomitant]
     Dosage: 80 MG, DAILY (1/D)
     Route: 048
     Dates: start: 20070907, end: 20070921
  11. MINOCYCLINE HCL [Concomitant]
     Indication: OSTEONECROSIS
  12. RINDERON #1 [Concomitant]
     Indication: BACK PAIN
     Dosage: 2.5 MG, DAILY (1/D)
     Dates: start: 20071225, end: 20071225

REACTIONS (1)
  - OSTEONECROSIS [None]
